FAERS Safety Report 21004051 (Version 1)
Quarter: 2022Q2

REPORT INFORMATION
  Report Type: Spontaneous
  Country: CH (occurrence: CH)
  Receive Date: 20220624
  Receipt Date: 20220624
  Transmission Date: 20220721
  Serious: Yes (Life-Threatening, Hospitalization, Other)
  Sender: FDA-Public Use
  Company Number: None

PATIENT
  Age: 82 Year
  Sex: Female
  Weight: 50 kg

DRUGS (13)
  1. NEURONTIN [Suspect]
     Active Substance: GABAPENTIN
     Indication: Epilepsy
     Dosage: DOSE INCREASE FROM 300 MG/DAY TO 900 MG/DAY
     Route: 048
     Dates: start: 20220308
  2. LAMICTAL [Suspect]
     Active Substance: LAMOTRIGINE
     Dosage: DOSE INCREASE FROM 24JAN2022 WITH THE TARGET DOSE OF 75 MG 1-0-1-0, DOSAGE ON 07MAR2022 75 MG 2X/DAY
     Route: 048
     Dates: start: 20220124, end: 20220307
  3. VIMPAT [Suspect]
     Active Substance: LACOSAMIDE
     Indication: Epilepsy
     Dosage: 50 MG SINCE 24JAN2022, DOSING ON 07MAR2022 75 MG 2X/DAY
     Route: 048
     Dates: start: 20220124, end: 20220307
  4. AMLODIPINE [Concomitant]
     Active Substance: AMLODIPINE BESYLATE
     Indication: Epilepsy
     Dosage: 5 MG, 1X/DAY (0-0-1-0)
     Route: 048
  5. AMLODIPINE [Concomitant]
     Active Substance: AMLODIPINE BESYLATE
     Dosage: 5 MG, AS NEEDED
     Route: 048
  6. ASPIRIN [Concomitant]
     Active Substance: ASPIRIN
     Dosage: 100 MG, 1X/DAY (1-0-0-0)
     Route: 048
  7. ATORVASTATIN [Concomitant]
     Active Substance: ATORVASTATIN
     Dosage: 40 MG, 1X/DAY (1-0-0-0)
     Route: 048
  8. CALCIUM\CHOLECALCIFEROL [Concomitant]
     Active Substance: CALCIUM\CHOLECALCIFEROL
     Dosage: 1 DF, 1X/DAY (1-0-0-0)
     Route: 048
  9. CANDESARTAN [Concomitant]
     Active Substance: CANDESARTAN
     Dosage: 16 MG, 2X/DAY (1-0-1-0)
     Route: 048
  10. NEBIVOLOL [Concomitant]
     Active Substance: NEBIVOLOL
     Dosage: 5 MG, DAILY (1/2-0-0-1/2)
     Route: 048
  11. DAFALGAN [Concomitant]
     Active Substance: ACETAMINOPHEN
     Dosage: 500 MG, AS NEEDED PROBABLY UNTIL FURTHER NOTICE
     Route: 048
  12. DOMPERIDONE [Concomitant]
     Active Substance: DOMPERIDONE
     Dosage: 10 MG, AS NEEDED PROBABLY UNTIL FURTHER NOTICE
     Route: 048
  13. LAXIPEG [Concomitant]
     Dosage: 1 DF, AS NEEDED PROBABLY UNTIL FURTHER NOTICE
     Route: 048

REACTIONS (3)
  - Pancytopenia [Recovered/Resolved]
  - Hepatic enzyme increased [Not Recovered/Not Resolved]
  - Hepatitis [Not Recovered/Not Resolved]

NARRATIVE: CASE EVENT DATE: 20220309
